FAERS Safety Report 23171702 (Version 1)
Quarter: 2023Q4

REPORT INFORMATION
  Report Type: Spontaneous
  Country: US (occurrence: US)
  Receive Date: 20231110
  Receipt Date: 20231110
  Transmission Date: 20240110
  Serious: Yes (Other)
  Sender: FDA-Public Use
  Company Number: US-BRISTOL-MYERS SQUIBB COMPANY-2023-160487

PATIENT
  Age: 82 Year
  Sex: Female

DRUGS (2)
  1. POMALYST [Suspect]
     Active Substance: POMALIDOMIDE
     Indication: Plasma cell myeloma
     Dosage: FREQUENCY 21?21 DAYS ON AND 7 DAYS OFF
  2. POMALYST [Suspect]
     Active Substance: POMALIDOMIDE
     Dosage: 14 DAYS ON AND 7 DAYS OFF

REACTIONS (2)
  - Neutropenia [Unknown]
  - Off label use [Unknown]
